FAERS Safety Report 4555646-7 (Version None)
Quarter: 2005Q1

REPORT INFORMATION
  Report Type: 
  Country: None (occurrence: None)
  Receive Date: 20050119
  Receipt Date: 20050113
  Transmission Date: 20050727
  Serious: Yes (Death)
  Sender: FDA-Public Use
  Company Number: US-JNJFOC-20050103292

PATIENT
  Age: 54 Year
  Sex: Male
  Weight: 83.92 kg

DRUGS (4)
  1. DURAGESIC [Suspect]
     Route: 062
  2. OXYCONTIN [Concomitant]
     Route: 049
  3. MORPHINE [Concomitant]
     Route: 049
  4. ALBUTEROL [Concomitant]
     Indication: EMPHYSEMA
     Route: 055

REACTIONS (3)
  - COMPLETED SUICIDE [None]
  - DEATH [None]
  - OVERDOSE [None]
